FAERS Safety Report 14764655 (Version 1)
Quarter: 2018Q2

REPORT INFORMATION
  Report Type: Spontaneous
  Country: US (occurrence: US)
  Receive Date: 20180410
  Receipt Date: 20180410
  Transmission Date: 20180711
  Serious: No
  Sender: FDA-Public Use
  Company Number: None

PATIENT
  Age: 90 Year
  Sex: Male

DRUGS (1)
  1. PROCRIT [Suspect]
     Active Substance: ERYTHROPOIETIN
     Dosage: ?          OTHER STRENGTH:1000U/MLX2ML;?

REACTIONS (2)
  - Product size issue [None]
  - Syringe issue [None]

NARRATIVE: CASE EVENT DATE: 20180402
